FAERS Safety Report 19323765 (Version 1)
Quarter: 2021Q2

REPORT INFORMATION
  Report Type: Spontaneous
  Country: US (occurrence: US)
  Receive Date: 20210528
  Receipt Date: 20210528
  Transmission Date: 20210717
  Serious: Yes (Other)
  Sender: FDA-Public Use
  Company Number: US-BAYER-2021-145713

PATIENT
  Age: 24 Year
  Sex: Female

DRUGS (3)
  1. ACETYLSALICYLIC ACID [Suspect]
     Active Substance: ASPIRIN
     Indication: MYOCARDITIS
     Dosage: 650 MG, BID
  2. ACETYLSALICYLIC ACID [Suspect]
     Active Substance: ASPIRIN
     Indication: MYOCARDITIS
     Dosage: 81 MG, BID
  3. COLCHICINE. [Suspect]
     Active Substance: COLCHICINE
     Dosage: 0.6 MG, BID

REACTIONS (4)
  - Off label use [None]
  - Placental insufficiency [None]
  - Foetal death [None]
  - Maternal exposure during pregnancy [None]
